FAERS Safety Report 8607263 (Version 3)
Quarter: 2013Q3

REPORT INFORMATION
  Report Type: Spontaneous
  Country: US (occurrence: US)
  Receive Date: 20120611
  Receipt Date: 20130814
  Transmission Date: 20140515
  Serious: No
  Sender: FDA-Public Use
  Company Number: US-ASTRAZENECA-2012SE35920

PATIENT
  Age: 57 Year
  Sex: Female
  Weight: 66.7 kg

DRUGS (26)
  1. NEXIUM [Suspect]
     Indication: GASTROOESOPHAGEAL REFLUX DISEASE
     Route: 048
     Dates: start: 200709, end: 200902
  2. NEXIUM [Suspect]
     Indication: GASTROOESOPHAGEAL REFLUX DISEASE
     Route: 048
     Dates: start: 200802, end: 200811
  3. NEXIUM [Suspect]
     Indication: GASTROOESOPHAGEAL REFLUX DISEASE
     Route: 048
     Dates: start: 201111
  4. NEXIUM [Suspect]
     Indication: GASTROOESOPHAGEAL REFLUX DISEASE
     Route: 048
     Dates: start: 201203, end: 201211
  5. NEXIUM [Suspect]
     Indication: GASTROOESOPHAGEAL REFLUX DISEASE
     Route: 048
     Dates: start: 201301
  6. PRILOSEC [Suspect]
     Route: 048
     Dates: start: 200903, end: 200910
  7. PRILOSEC [Suspect]
     Dosage: 1- 2 CAPSULE DAILY
     Route: 048
     Dates: start: 201001, end: 201011
  8. PRILOSEC [Suspect]
     Dosage: 1- 2 CAPSULE DAILY
     Route: 048
     Dates: start: 201102, end: 201110
  9. CELEBREX [Concomitant]
     Route: 048
     Dates: start: 200709
  10. ZOCOR [Concomitant]
     Route: 048
     Dates: start: 200603
  11. AMBIEN [Concomitant]
     Indication: INSOMNIA
     Route: 048
     Dates: start: 200709
  12. CYCLOBENZAPRINE HCL [Concomitant]
     Dosage: TAKE ONE TABLET BY MOUTH 1 TO 2 HOURS BEFORE BEDTIME
     Route: 048
     Dates: start: 200603
  13. TRAMADOL [Concomitant]
  14. SIMVASTATIN [Concomitant]
     Dates: start: 2007
  15. ZOLPIDEM TARTRATE [Concomitant]
  16. ASPIRIN [Concomitant]
     Dates: start: 2008
  17. ALPRAZOLAM [Concomitant]
  18. PANTOPRAZOLE SODIUM [Concomitant]
     Route: 048
  19. SERTRALINE HCL [Concomitant]
  20. CLARTIN [Concomitant]
     Dates: start: 2012
  21. ZETIA [Concomitant]
     Dates: start: 2012
  22. CELECOXIB [Concomitant]
  23. BUPROPRION HYDROCHLORIDE [Concomitant]
     Dates: start: 2013
  24. CALCIUM [Concomitant]
     Dates: start: 2012
  25. HYDROCODONE [Concomitant]
     Dates: start: 2013
  26. EZETIMIBE [Concomitant]
     Dates: start: 2013

REACTIONS (9)
  - Osteoporosis [Unknown]
  - Multiple fractures [Unknown]
  - Bone pain [Unknown]
  - Osteoarthritis [Unknown]
  - Arthritis [Unknown]
  - Osteopenia [Unknown]
  - Vascular calcification [Unknown]
  - Exostosis [Unknown]
  - Depression [Unknown]
